FAERS Safety Report 8067644 (Version 2)
Quarter: 2013Q2

REPORT INFORMATION
  Report Type: Spontaneous
  Country: MX (occurrence: MX)
  Receive Date: 20110803
  Receipt Date: 20130611
  Transmission Date: 20140414
  Serious: Yes (Other)
  Sender: FDA-Public Use
  Company Number: PHHY2011MX66937

PATIENT
  Age: 30 Year
  Sex: Male

DRUGS (3)
  1. ZELMAC [Suspect]
     Indication: IRRITABLE BOWEL SYNDROME
     Dosage: 2 DF, QD
     Route: 048
     Dates: start: 20110709
  2. RIFAXIMIN [Concomitant]
     Dosage: UNK UKN, UNK
  3. PRISTIQ [Concomitant]
     Dosage: UNK UKN, UNK

REACTIONS (7)
  - Cardiac disorder [Recovered/Resolved]
  - Amino acid metabolism disorder [Unknown]
  - Colitis [Recovered/Resolved]
  - Dyspnoea [Recovered/Resolved]
  - Hyperhidrosis [Recovered/Resolved]
  - Decreased appetite [Recovered/Resolved]
  - Weight decreased [Recovered/Resolved]
